FAERS Safety Report 17243724 (Version 1)
Quarter: 2020Q1

REPORT INFORMATION
  Report Type: Spontaneous
  Country: US (occurrence: US)
  Receive Date: 20200107
  Receipt Date: 20200107
  Transmission Date: 20200409
  Serious: Yes (Disabling)
  Sender: FDA-Public Use
  Company Number: US-TEVA-2020-US-1164078

PATIENT

DRUGS (2)
  1. TAXOTERE [Suspect]
     Active Substance: DOCETAXEL
     Dates: start: 201411, end: 201504
  2. DOCETAXEL INJECTION [Suspect]
     Active Substance: DOCETAXEL
     Dates: start: 201411, end: 201504

REACTIONS (1)
  - Alopecia [Not Recovered/Not Resolved]
